FAERS Safety Report 7348377-1 (Version None)
Quarter: 2011Q1

REPORT INFORMATION
  Report Type: 
  Country: None (occurrence: None)
  Receive Date: 20110311
  Receipt Date: 20110304
  Transmission Date: 20110831
  Serious: Yes (Hospitalization, Disabling)
  Sender: FDA-Public Use
  Company Number: US-MERCK-0705USA02792

PATIENT
  Age: 42 Year
  Sex: Female
  Weight: 46 kg

DRUGS (6)
  1. FOSAMAX [Suspect]
     Indication: OSTEOPENIA
     Route: 048
     Dates: start: 19950101
  2. FOSAMAX [Suspect]
     Route: 048
     Dates: end: 20070101
  3. FOSAMAX [Suspect]
     Route: 048
     Dates: end: 20070101
  4. FOSAMAX [Suspect]
     Route: 048
  5. FOSAMAX [Suspect]
     Indication: STRESS FRACTURE
     Route: 048
     Dates: start: 19950101
  6. FOSAMAX [Suspect]
     Route: 048

REACTIONS (39)
  - ABSCESS JAW [None]
  - HYPOTENSION [None]
  - HYPERSENSITIVITY [None]
  - TOOTH DISORDER [None]
  - STRESS FRACTURE [None]
  - PALPITATIONS [None]
  - VIITH NERVE PARALYSIS [None]
  - DYSPNOEA [None]
  - OSTEONECROSIS OF JAW [None]
  - DENTAL CARIES [None]
  - MUSCLE STRAIN [None]
  - CHRONIC SINUSITIS [None]
  - ANXIETY [None]
  - HYPOAESTHESIA ORAL [None]
  - THORACIC OUTLET SYNDROME [None]
  - COMPLEX REGIONAL PAIN SYNDROME [None]
  - NEUROPATHY PERIPHERAL [None]
  - TRIGEMINAL NEURALGIA [None]
  - SENSITIVITY OF TEETH [None]
  - PAIN [None]
  - DEVICE FAILURE [None]
  - CARDIAC DISORDER [None]
  - CARPAL TUNNEL SYNDROME [None]
  - CELLULITIS [None]
  - DENTAL NECROSIS [None]
  - INSOMNIA [None]
  - CHEST PAIN [None]
  - ARRHYTHMIA [None]
  - LIP PAIN [None]
  - HERPES ZOSTER [None]
  - GINGIVITIS [None]
  - JOINT SPRAIN [None]
  - BONE DENSITY DECREASED [None]
  - SUPRAVENTRICULAR EXTRASYSTOLES [None]
  - PERIOSTITIS [None]
  - OSTEOMYELITIS CHRONIC [None]
  - ELECTROCARDIOGRAM PR SHORTENED [None]
  - GINGIVAL RECESSION [None]
  - TOOTH INFECTION [None]
